FAERS Safety Report 21028761 (Version 2)
Quarter: 2022Q3

REPORT INFORMATION
  Report Type: Other
  Country: US (occurrence: US)
  Receive Date: 20220630
  Receipt Date: 20220727
  Transmission Date: 20221026
  Serious: Yes (Hospitalization)
  Sender: FDA-Public Use
  Company Number: US-DECIPHERA PHARMACEUTICALS LLC-2022US000538

PATIENT
  Sex: Male

DRUGS (2)
  1. QINLOCK [Suspect]
     Active Substance: RIPRETINIB
     Indication: Product used for unknown indication
     Dosage: UNK
     Route: 048
     Dates: start: 20220317, end: 2022
  2. QINLOCK [Suspect]
     Active Substance: RIPRETINIB
     Dosage: 150 MILLIGRAM, BID
     Route: 048
     Dates: start: 2022

REACTIONS (4)
  - Small intestinal obstruction [Recovered/Resolved]
  - COVID-19 [Not Recovered/Not Resolved]
  - Alopecia [Recovering/Resolving]
  - Extra dose administered [Unknown]

NARRATIVE: CASE EVENT DATE: 20220101
